FAERS Safety Report 25569994 (Version 1)
Quarter: 2025Q3

REPORT INFORMATION
  Report Type: Spontaneous
  Country: US (occurrence: US)
  Receive Date: 20250717
  Receipt Date: 20250717
  Transmission Date: 20251021
  Serious: No
  Sender: ENDO
  Company Number: US-ENDO USA, INC.-2024-050945

PATIENT
  Age: 82 Year
  Sex: Female

DRUGS (4)
  1. CALCITONIN SALMON [Suspect]
     Active Substance: CALCITONIN SALMON
     Indication: Osteopenia
     Route: 045
     Dates: start: 202411
  2. CALCITONIN SALMON [Suspect]
     Active Substance: CALCITONIN SALMON
     Indication: Osteopenia
     Route: 045
     Dates: start: 202411
  3. CALCITONIN SALMON [Suspect]
     Active Substance: CALCITONIN SALMON
     Route: 045
  4. CALCITONIN SALMON [Suspect]
     Active Substance: CALCITONIN SALMON
     Route: 045

REACTIONS (4)
  - Myalgia [Unknown]
  - Back pain [Unknown]
  - Off label use [Not Recovered/Not Resolved]
  - Product packaging quantity issue [Recovered/Resolved]

NARRATIVE: CASE EVENT DATE: 20241101
